FAERS Safety Report 7098837-6 (Version None)
Quarter: 2010Q4

REPORT INFORMATION
  Report Type: 
  Country: None (occurrence: None)
  Receive Date: 20101112
  Receipt Date: 20080609
  Transmission Date: 20110411
  Serious: No
  Sender: FDA-Public Use
  Company Number: US-KINGPHARMUSA00001-K200800679

PATIENT
  Sex: Female

DRUGS (4)
  1. TAPAZOLE [Suspect]
     Indication: AUTOIMMUNE THYROIDITIS
     Dosage: 5 MG, QD
     Route: 048
     Dates: start: 20000101
  2. TAPAZOLE [Suspect]
     Dosage: 5 MG DAILY 6 DAYS/WEEK, UNK
     Route: 048
     Dates: end: 20080301
  3. TAPAZOLE [Suspect]
     Dosage: 5 MG, QOD
     Route: 048
     Dates: start: 20080301
  4. VITAMINS [Concomitant]
     Indication: VITAMIN SUPPLEMENTATION
     Dosage: UNK, QD
     Route: 048

REACTIONS (4)
  - DYSGEUSIA [None]
  - PARAESTHESIA [None]
  - PARAESTHESIA ORAL [None]
  - THYROID FUNCTION TEST ABNORMAL [None]
